FAERS Safety Report 7338902-9 (Version None)
Quarter: 2011Q1

REPORT INFORMATION
  Report Type: 
  Country: None (occurrence: None)
  Receive Date: 20110308
  Receipt Date: 20110224
  Transmission Date: 20110831
  Serious: Yes (Hospitalization, Other)
  Sender: FDA-Public Use
  Company Number: US-ASTRAZENECA-2011SE10431

PATIENT
  Age: 60 Year
  Sex: Female
  Weight: 81.6 kg

DRUGS (5)
  1. SEROQUEL [Suspect]
     Dosage: 150 MG, HALF TABLET
     Route: 048
  2. CYMBALTA [Concomitant]
     Indication: DEPRESSION
     Dosage: DAILY
     Route: 048
  3. SEROQUEL [Suspect]
     Indication: DEPRESSION
     Route: 048
     Dates: end: 20100201
  4. BUSPAR [Concomitant]
     Indication: DEPRESSION
     Dosage: DAILY
     Route: 048
  5. SEROQUEL [Suspect]
     Route: 048
     Dates: start: 20100201

REACTIONS (14)
  - DRUG INTOLERANCE [None]
  - WEIGHT INCREASED [None]
  - WRONG TECHNIQUE IN DRUG USAGE PROCESS [None]
  - RAPID EYE MOVEMENTS SLEEP ABNORMAL [None]
  - INCREASED APPETITE [None]
  - THINKING ABNORMAL [None]
  - IMPAIRED WORK ABILITY [None]
  - DRUG DOSE OMISSION [None]
  - OBSESSIVE-COMPULSIVE PERSONALITY DISORDER [None]
  - RENAL CANCER [None]
  - SKIN CANCER [None]
  - DEPRESSION [None]
  - DIABETES MELLITUS [None]
  - SOMNOLENCE [None]
